FAERS Safety Report 7941222-2 (Version None)
Quarter: 2011Q4

REPORT INFORMATION
  Report Type: 
  Country: None (occurrence: None)
  Receive Date: 20111128
  Receipt Date: 20111116
  Transmission Date: 20120403
  Serious: Yes (Hospitalization, Disabling)
  Sender: FDA-Public Use
  Company Number: JP-JNJFOC-20111102363

PATIENT
  Age: 26 Year
  Sex: Male

DRUGS (5)
  1. AMOBAN [Concomitant]
     Indication: ARRHYTHMIA
     Route: 048
     Dates: start: 20110705, end: 20111018
  2. ZYPREXA [Concomitant]
     Indication: PSYCHOTIC DISORDER
     Route: 048
     Dates: start: 20110912, end: 20111017
  3. RISPERDAL [Suspect]
     Indication: PSYCHOTIC DISORDER
     Route: 048
     Dates: start: 20110920, end: 20111017
  4. GASMOTIN [Concomitant]
     Indication: DECREASED APPETITE
     Route: 048
     Dates: start: 20110705, end: 20111018
  5. ZOLOFT [Concomitant]
     Indication: PSYCHOTIC DISORDER
     Route: 048
     Dates: start: 20110912, end: 20111017

REACTIONS (2)
  - PULMONARY EOSINOPHILIA [None]
  - PNEUMONIA [None]
